FAERS Safety Report 21847606 (Version 1)
Quarter: 2023Q1

REPORT INFORMATION
  Report Type: Spontaneous
  Country: US (occurrence: US)
  Receive Date: 20230111
  Receipt Date: 20230111
  Transmission Date: 20230417
  Serious: No
  Sender: FDA-Public Use
  Company Number: US-SA-SAC20230109000794

PATIENT
  Age: 53 Year
  Sex: Female
  Weight: 127 kg

DRUGS (1)
  1. DUPIXENT [Suspect]
     Active Substance: DUPILUMAB
     Indication: Asthma
     Dosage: 300 MG, QOW
     Route: 058
     Dates: start: 202006

REACTIONS (6)
  - Weight increased [Unknown]
  - Ear swelling [Unknown]
  - Sinus disorder [Unknown]
  - Abdominal distension [Unknown]
  - Condition aggravated [Unknown]
  - Eye swelling [Unknown]
